FAERS Safety Report 19374696 (Version 1)
Quarter: 2021Q2

REPORT INFORMATION
  Report Type: Spontaneous
  Country: ES (occurrence: ES)
  Receive Date: 20210604
  Receipt Date: 20210604
  Transmission Date: 20210717
  Serious: No
  Sender: FDA-Public Use
  Company Number: ES-LUPIN PHARMACEUTICALS INC.-2021-08307

PATIENT
  Age: 7 Year
  Sex: Male

DRUGS (6)
  1. IVERMECTIN. [Concomitant]
     Active Substance: IVERMECTIN
     Dosage: UNK, A SECOND COURSE WAS REPEATED AFTER 2 WEEKS
     Route: 065
  2. ALBENDAZOLE. [Suspect]
     Active Substance: ALBENDAZOLE
     Indication: STRONGYLOIDIASIS
     Dosage: UNK, COMBINATION OF ALBENDAZOLE AND IVERMECTIN
     Route: 065
  3. TACROLIMUS. [Concomitant]
     Active Substance: TACROLIMUS
     Indication: IMMUNOSUPPRESSANT DRUG THERAPY
     Dosage: UNK
     Route: 065
  4. IVERMECTIN. [Concomitant]
     Active Substance: IVERMECTIN
     Indication: STRONGYLOIDIASIS
     Dosage: 0.2 MILLIGRAM/KILOGRAM, QD
     Route: 065
  5. IVERMECTIN. [Concomitant]
     Active Substance: IVERMECTIN
     Dosage: UNK, COMBINED REGIMEN OF ALBENDAZOLE AND IVERMECTIN
     Route: 065
  6. ALBENDAZOLE. [Suspect]
     Active Substance: ALBENDAZOLE
     Dosage: UNK, RESTARTED?COMBINED REGIMEN OF ALBENDAZOLE AND IVERMECTIN
     Route: 065

REACTIONS (1)
  - Hypersensitivity [Recovered/Resolved]
